FAERS Safety Report 8395653-X (Version None)
Quarter: 2012Q2

REPORT INFORMATION
  Report Type: 
  Country: None (occurrence: None)
  Receive Date: 20120530
  Receipt Date: 20120119
  Transmission Date: 20120825
  Serious: No
  Sender: FDA-Public Use
  Company Number: US-GLAXOSMITHKLINE-A0962218A

PATIENT
  Age: 66 Year
  Sex: Female

DRUGS (1)
  1. VENTOLIN [Suspect]
     Indication: DYSPNOEA
     Dosage: 1PUFF PER DAY
     Route: 055
     Dates: start: 20100101

REACTIONS (1)
  - DRUG INEFFECTIVE [None]
